FAERS Safety Report 11639624 (Version 1)
Quarter: 2015Q4

REPORT INFORMATION
  Report Type: Report from Study
  Country: GB (occurrence: GB)
  Receive Date: 20151019
  Receipt Date: 20151019
  Transmission Date: 20160304
  Serious: Yes (Hospitalization)
  Sender: FDA-Public Use
  Company Number: GB-ABBVIE-15K-167-1482201-00

PATIENT
  Age: 83 Year
  Sex: Female

DRUGS (1)
  1. HUMIRA [Suspect]
     Active Substance: ADALIMUMAB
     Indication: RHEUMATOID ARTHRITIS
     Route: 058
     Dates: start: 20140303, end: 20141010

REACTIONS (6)
  - Rectal haemorrhage [Unknown]
  - Vomiting [Unknown]
  - Faeces discoloured [Unknown]
  - Mallory-Weiss syndrome [Unknown]
  - Abdominal pain lower [Unknown]
  - Syncope [Unknown]

NARRATIVE: CASE EVENT DATE: 20141113
